FAERS Safety Report 24804853 (Version 2)
Quarter: 2025Q1

REPORT INFORMATION
  Report Type: Report from Study
  Country: CA (occurrence: CA)
  Receive Date: 20250103
  Receipt Date: 20250203
  Transmission Date: 20250409
  Serious: Yes (Other)
  Sender: SANDOZ
  Company Number: CA-SANDOZ-SDZ2024CA076895

PATIENT
  Sex: Male

DRUGS (2)
  1. HYRIMOZ [Suspect]
     Active Substance: ADALIMUMAB-ADAZ
     Indication: Crohn^s disease
     Dosage: 40 MG, Q2W
     Route: 058
     Dates: start: 20220511
  2. VITAMIN D [Concomitant]
     Active Substance: VITAMIN D NOS
     Indication: Product used for unknown indication
     Dosage: UNK, Q3W
     Route: 065

REACTIONS (9)
  - Diabetes mellitus [Unknown]
  - Balance disorder [Unknown]
  - Fall [Unknown]
  - Faeces hard [Unknown]
  - Osteoarthritis [Unknown]
  - Hernia [Unknown]
  - Glucose tolerance impaired [Unknown]
  - Anxiety [Unknown]
  - Headache [Unknown]
